FAERS Safety Report 8691298 (Version 3)
Quarter: 2012Q4

REPORT INFORMATION
  Report Type: Report from Study
  Country: US (occurrence: US)
  Receive Date: 20120730
  Receipt Date: 20121004
  Transmission Date: 20130627
  Serious: Yes (Life-Threatening)
  Sender: FDA-Public Use
  Company Number: US-US-EMD SERONO, INC.-7150286

PATIENT
  Age: 58 Year
  Sex: Female
  Weight: 85 kg

DRUGS (5)
  1. REBIF [Suspect]
     Indication: MULTIPLE SCLEROSIS
     Route: 058
     Dates: start: 20120603, end: 20120724
  2. BACLOFEN [Concomitant]
     Indication: MUSCLE SPASMS
  3. SIMVASTATIN [Concomitant]
     Indication: BLOOD CHOLESTEROL INCREASED
  4. VITAMIN D3 [Concomitant]
     Indication: VITAMIN D DEFICIENCY
  5. ASPIRIN [Concomitant]
     Indication: CORONARY ARTERY DISEASE

REACTIONS (3)
  - Convulsion [Recovered/Resolved]
  - Fall [Unknown]
  - Cough [Unknown]
